FAERS Safety Report 13101804 (Version 1)
Quarter: 2017Q1

REPORT INFORMATION
  Report Type: Spontaneous
  Country: US (occurrence: US)
  Receive Date: 20170110
  Receipt Date: 20170110
  Transmission Date: 20170428
  Serious: Yes (Other)
  Sender: FDA-Public Use
  Company Number: US-BAYER-2017-001029

PATIENT

DRUGS (3)
  1. CIPRO [Suspect]
     Active Substance: CIPROFLOXACIN HYDROCHLORIDE
  2. AVELOX [Suspect]
     Active Substance: MOXIFLOXACIN HYDROCHLORIDE
     Dosage: UNK
  3. LEVOFLOXACIN. [Suspect]
     Active Substance: LEVOFLOXACIN
     Dosage: UNK

REACTIONS (12)
  - Cardiovascular disorder [None]
  - Mental disorder [None]
  - Hypoaesthesia [None]
  - Asthenia [None]
  - Musculoskeletal disorder [None]
  - Pain [None]
  - Paraesthesia [None]
  - Nervous system disorder [None]
  - Sensory disturbance [None]
  - Skin disorder [None]
  - Neuropathy peripheral [None]
  - Burning sensation [None]
